FAERS Safety Report 15786078 (Version 2)
Quarter: 2019Q1

REPORT INFORMATION
  Report Type: Spontaneous
  Country: US (occurrence: US)
  Receive Date: 20190103
  Receipt Date: 20190320
  Transmission Date: 20190417
  Serious: Yes (Other)
  Sender: FDA-Public Use
  Company Number: US-SA-2019SA000445

PATIENT
  Age: 65 Year
  Sex: Female
  Weight: 122 kg

DRUGS (6)
  1. TAXOTERE [Suspect]
     Active Substance: DOCETAXEL
     Indication: BREAST CANCER FEMALE
     Dosage: UNK UNK, UNK
     Route: 042
     Dates: start: 20130228, end: 20130228
  2. TAXOTERE [Suspect]
     Active Substance: DOCETAXEL
     Dosage: UNK
     Route: 042
     Dates: start: 20130503, end: 20130503
  3. HYDROCHLOROTHIAZIDE. [Concomitant]
     Active Substance: HYDROCHLOROTHIAZIDE
     Dosage: UNK
     Dates: start: 20090101
  4. HYDROXYUREA. [Concomitant]
     Active Substance: HYDROXYUREA
     Dosage: UNK
     Dates: start: 19970101
  5. NEOSAR [Concomitant]
     Active Substance: CYCLOPHOSPHAMIDE
  6. CALCITONIN SALMON. [Concomitant]
     Active Substance: CALCITONIN SALMON
     Dosage: UNK
     Dates: start: 20150101

REACTIONS (2)
  - Alopecia [Recovering/Resolving]
  - Psychological trauma [Unknown]

NARRATIVE: CASE EVENT DATE: 20131103
